FAERS Safety Report 6252889-1 (Version None)
Quarter: 2009Q3

REPORT INFORMATION
  Report Type: 
  Country: None (occurrence: None)
  Receive Date: 20090701
  Receipt Date: 20090623
  Transmission Date: 20100115
  Serious: Yes (Hospitalization)
  Sender: FDA-Public Use
  Company Number: A0639044A

PATIENT
  Age: 44 Year
  Sex: Female

DRUGS (11)
  1. AVANDIA [Suspect]
     Dosage: 8MG PER DAY
     Route: 048
     Dates: start: 20050824, end: 20061223
  2. DEPAKOTE [Suspect]
     Indication: DRUG USE FOR UNKNOWN INDICATION
     Route: 065
  3. IBUPROFEN [Concomitant]
  4. BENICAR [Concomitant]
  5. TOPROL-XL [Concomitant]
  6. PROTONIX [Concomitant]
  7. PERPHENAZINE [Concomitant]
  8. AMITRIPTYLINE [Concomitant]
  9. NITROGLYCERIN [Concomitant]
  10. ASPIRIN [Concomitant]
  11. METFORMIN [Concomitant]

REACTIONS (6)
  - CHEST PAIN [None]
  - HYPERTENSION [None]
  - MYOCARDIAL INFARCTION [None]
  - NEUROPATHY PERIPHERAL [None]
  - RETCHING [None]
  - WEIGHT INCREASED [None]
